FAERS Safety Report 8469743-7 (Version None)
Quarter: 2012Q2

REPORT INFORMATION
  Report Type: 
  Country: None (occurrence: None)
  Receive Date: 20120626
  Receipt Date: 20120625
  Transmission Date: 20120825
  Serious: No
  Sender: FDA-Public Use
  Company Number: US-PFIZER INC-2012153241

PATIENT
  Sex: Female

DRUGS (4)
  1. CHANTIX [Suspect]
     Dosage: 1 MG, 2X/DAY
     Dates: start: 20120501
  2. CHANTIX [Suspect]
     Indication: SMOKING CESSATION THERAPY
     Dosage: 0.5 MG, DAILY
     Dates: start: 20110301
  3. CHANTIX [Suspect]
     Dosage: 0.5 MG, 2X/DAY
  4. CHANTIX [Suspect]
     Dosage: 1 MG, 2X/DAY
     Dates: end: 20110101

REACTIONS (2)
  - WEIGHT INCREASED [None]
  - WEIGHT DECREASED [None]
